FAERS Safety Report 5365340-0 (Version None)
Quarter: 2007Q2

REPORT INFORMATION
  Report Type: 
  Country: None (occurrence: None)
  Receive Date: 20070530
  Receipt Date: 20070320
  Transmission Date: 20071010
  Serious: No
  Sender: FDA-Public Use
  Company Number: 2005PV006356

PATIENT
  Age: 48 Year
  Sex: Male
  Weight: 78.9259 kg

DRUGS (8)
  1. BYETTA [Suspect]
     Indication: DIABETES MELLITUS
     Dosage: 5 MCG; BID; SC, 10 MCG; BID; SC, 5 MCG; BID; SC, 10 MCG; SC, 10 MCG; SC, 5 MCG; SC
     Route: 058
     Dates: start: 20051001, end: 20051101
  2. BYETTA [Suspect]
     Indication: DIABETES MELLITUS
     Dosage: 5 MCG; BID; SC, 10 MCG; BID; SC, 5 MCG; BID; SC, 10 MCG; SC, 10 MCG; SC, 5 MCG; SC
     Route: 058
     Dates: start: 20051101, end: 20051201
  3. BYETTA [Suspect]
     Indication: DIABETES MELLITUS
     Dosage: 5 MCG; BID; SC, 10 MCG; BID; SC, 5 MCG; BID; SC, 10 MCG; SC, 10 MCG; SC, 5 MCG; SC
     Route: 058
     Dates: end: 20070301
  4. BYETTA [Suspect]
     Indication: DIABETES MELLITUS
     Dosage: 5 MCG; BID; SC, 10 MCG; BID; SC, 5 MCG; BID; SC, 10 MCG; SC, 10 MCG; SC, 5 MCG; SC
     Route: 058
     Dates: start: 20051201
  5. BYETTA [Suspect]
     Indication: DIABETES MELLITUS
     Dosage: 5 MCG; BID; SC, 10 MCG; BID; SC, 5 MCG; BID; SC, 10 MCG; SC, 10 MCG; SC, 5 MCG; SC
     Route: 058
     Dates: start: 20070319
  6. AMARYL [Concomitant]
  7. GLUCOPHAGE [Concomitant]
  8. LISINOPRIL [Concomitant]

REACTIONS (7)
  - ADVERSE EVENT [None]
  - BLOOD PRESSURE INCREASED [None]
  - DYSPEPSIA [None]
  - HEART RATE INCREASED [None]
  - NAUSEA [None]
  - VOMITING [None]
  - WEIGHT DECREASED [None]
